FAERS Safety Report 22535519 (Version 2)
Quarter: 2023Q2

REPORT INFORMATION
  Report Type: Spontaneous
  Country: US (occurrence: US)
  Receive Date: 20230608
  Receipt Date: 20230619
  Transmission Date: 20230722
  Serious: Yes (Other)
  Sender: FDA-Public Use
  Company Number: US-TEVA-2023-US-2893758

PATIENT
  Age: 5 Month
  Sex: Male

DRUGS (12)
  1. DOXORUBICIN [Suspect]
     Active Substance: DOXORUBICIN
     Indication: Congenital fibrosarcoma
     Dosage: SIX ALTERNATING CYCLES OF VAC REGIMEN WITH IDE REGIMEN
     Route: 065
  2. ETOPOSIDE [Suspect]
     Active Substance: ETOPOSIDE
     Indication: Congenital fibrosarcoma
     Dosage: SIX ALTERNATING CYCLES OF VAC REGIMEN WITH IDE REGIMEN
     Route: 065
  3. IFOSFAMIDE [Suspect]
     Active Substance: IFOSFAMIDE
     Indication: Congenital fibrosarcoma
     Dosage: SIX ALTERNATING CYCLES OF VAC REGIMEN WITH IDE REGIMEN
     Route: 065
  4. PREDNISONE [Suspect]
     Active Substance: PREDNISONE
     Indication: Congenital fibrosarcoma
     Route: 065
  5. VINCRISTINE [Suspect]
     Active Substance: VINCRISTINE
     Indication: Congenital fibrosarcoma
     Route: 065
  6. VINCRISTINE [Suspect]
     Active Substance: VINCRISTINE
     Dosage: SIX ALTERNATING CYCLES OF VAC REGIMEN WITH IDE REGIMEN
     Route: 065
  7. SIROLIMUS [Suspect]
     Active Substance: SIROLIMUS
     Indication: Congenital fibrosarcoma
     Route: 065
  8. DACTINOMYCIN [Suspect]
     Active Substance: DACTINOMYCIN
     Indication: Congenital fibrosarcoma
     Dosage: SIX ALTERNATING CYCLES OF VAC REGIMEN WITH IDE REGIMEN
     Route: 065
  9. CYCLOPHOSPHAMIDE [Suspect]
     Active Substance: CYCLOPHOSPHAMIDE
     Indication: Congenital fibrosarcoma
     Dosage: SIX ALTERNATING CYCLES OF VAC REGIMEN WITH IDE REGIMEN
     Route: 065
  10. LAROTRECTINIB [Suspect]
     Active Substance: LAROTRECTINIB
     Indication: Congenital fibrosarcoma
     Route: 065
  11. LAROTRECTINIB [Suspect]
     Active Substance: LAROTRECTINIB
     Route: 065
  12. LAROTRECTINIB [Suspect]
     Active Substance: LAROTRECTINIB
     Dosage: RESTARTED
     Route: 065

REACTIONS (2)
  - Drug ineffective [Unknown]
  - Neutropenia [Unknown]
